FAERS Safety Report 12208158 (Version 1)
Quarter: 2016Q1

REPORT INFORMATION
  Report Type: Spontaneous
  Country: DE (occurrence: DE)
  Receive Date: 20160324
  Receipt Date: 20160324
  Transmission Date: 20160526
  Serious: Yes (Congenital Anomaly)
  Sender: FDA-Public Use
  Company Number: GXKR2016DE001579

PATIENT

DRUGS (6)
  1. HUMIRA [Suspect]
     Active Substance: ADALIMUMAB
     Indication: CROHN^S DISEASE
     Dosage: SINCE JUNE 2013 EVERY TWO WEEKS HUMIRA; ONLY ONCE SINCE PATIENT IS PREGNANT. GW 0-4
     Route: 064
  2. METOPROLOL. [Suspect]
     Active Substance: METOPROLOL
     Indication: HYPERTENSION
     Dosage: UNK; GW 0-23
     Route: 064
  3. DOPEGYT [Concomitant]
     Active Substance: METHYLDOPA
     Indication: HYPERTENSION
     Dosage: WEEK 23 - 29 AND 34  - 38+6 DAYS
     Route: 064
  4. ADALAT [Concomitant]
     Active Substance: NIFEDIPINE
     Indication: HYPERTENSION
     Dosage: UNK UKN, UNK
     Route: 064
  5. L-THYROXINE//LEVOTHYROXINE [Concomitant]
     Indication: HYPOTHYROIDISM
     Dosage: 75 [?G/D ]
     Route: 064
     Dates: start: 20150310, end: 20151207
  6. CLOMIFENE [Concomitant]
     Active Substance: CLOMIPHENE
     Indication: OVULATION INDUCTION
     Route: 064

REACTIONS (2)
  - Congenital musculoskeletal anomaly [Unknown]
  - Naevus flammeus [Not Recovered/Not Resolved]

NARRATIVE: CASE EVENT DATE: 20151207
